FAERS Safety Report 5463343-9 (Version None)
Quarter: 2007Q3

REPORT INFORMATION
  Report Type: 
  Country: None (occurrence: None)
  Receive Date: 20070920
  Receipt Date: 20070912
  Transmission Date: 20080115
  Serious: Yes (Other)
  Sender: FDA-Public Use
  Company Number: IE-ELI_LILLY_AND_COMPANY-IE200706005164

PATIENT
  Age: 60 Year
  Sex: Female

DRUGS (8)
  1. FLORINEF [Concomitant]
     Dosage: UNK, UNKNOWN
     Route: 065
  2. FRUMIL [Concomitant]
     Dosage: UNK, UNKNOWN
     Route: 065
  3. CALCICHEW-D3 [Concomitant]
     Dosage: UNK, UNKNOWN
     Route: 065
  4. PARALIEF [Concomitant]
     Dosage: UNK, UNKNOWN
     Route: 065
  5. ENSURE PLUS [Concomitant]
     Dosage: UNK, UNKNOWN
     Route: 065
  6. ZIMOVANE [Concomitant]
     Dosage: UNK, UNKNOWN
     Route: 065
  7. NEXIUM [Concomitant]
     Dosage: UNK, UNKNOWN
     Route: 065
  8. FORTEO [Suspect]
     Indication: OSTEOPOROSIS
     Dosage: UNK, UNKNOWN
     Route: 065

REACTIONS (5)
  - ANOREXIA [None]
  - DIZZINESS [None]
  - NAUSEA [None]
  - PRURITUS [None]
  - VOMITING [None]
